FAERS Safety Report 7003170-4 (Version None)
Quarter: 2010Q3

REPORT INFORMATION
  Report Type: 
  Country: None (occurrence: None)
  Receive Date: 20100920
  Receipt Date: 20100625
  Transmission Date: 20110219
  Serious: No
  Sender: FDA-Public Use
  Company Number: US-ASTRAZENECA-2010SE30028

PATIENT
  Age: 647 Month
  Sex: Female
  Weight: 74.8 kg

DRUGS (6)
  1. SEROQUEL [Suspect]
     Indication: DEPRESSION
     Route: 048
     Dates: start: 20030101, end: 20100525
  2. NEXIUM [Concomitant]
     Indication: ABDOMINAL PAIN UPPER
  3. XANAX [Concomitant]
  4. REMERON [Concomitant]
     Indication: DEPRESSION
  5. HORMONES [Concomitant]
  6. BELLADONNA [Concomitant]

REACTIONS (2)
  - CRYING [None]
  - DRUG DOSE OMISSION [None]
